FAERS Safety Report 15254982 (Version 1)
Quarter: 2018Q3

REPORT INFORMATION
  Report Type: Spontaneous
  Country: US (occurrence: US)
  Receive Date: 20180717
  Receipt Date: 20180717
  Transmission Date: 20181010
  Serious: No
  Sender: FDA-Public Use
  Company Number: None

PATIENT
  Age: 54 Year
  Sex: Female

DRUGS (1)
  1. TEMOZOLOMIDE CAP 5MG [Suspect]
     Active Substance: TEMOZOLOMIDE

REACTIONS (6)
  - Vomiting [None]
  - Drug effect delayed [None]
  - Blood test abnormal [None]
  - Weight decreased [None]
  - Nausea [None]
  - Wrong technique in product usage process [None]

NARRATIVE: CASE EVENT DATE: 20180430
